FAERS Safety Report 7041098-4 (Version None)
Quarter: 2010Q3

REPORT INFORMATION
  Report Type: 
  Country: None (occurrence: None)
  Receive Date: 20100929
  Receipt Date: 20100611
  Transmission Date: 20110219
  Serious: No
  Sender: FDA-Public Use
  Company Number: US-WYE-H15651510

PATIENT
  Sex: Female

DRUGS (2)
  1. PRISTIQ [Suspect]
     Indication: DEPRESSION
     Dates: start: 20100610
  2. SINGULAIR [Concomitant]

REACTIONS (6)
  - HEADACHE [None]
  - HEART RATE INCREASED [None]
  - MALAISE [None]
  - NERVOUSNESS [None]
  - PANIC REACTION [None]
  - TINNITUS [None]
